FAERS Safety Report 15615537 (Version 1)
Quarter: 2018Q4

REPORT INFORMATION
  Report Type: Spontaneous
  Country: FR (occurrence: FR)
  Receive Date: 20181114
  Receipt Date: 20181114
  Transmission Date: 20190205
  Serious: Yes (Hospitalization)
  Sender: FDA-Public Use
  Company Number: FR-ACCORD-091952

PATIENT
  Age: 64 Year
  Sex: Female

DRUGS (3)
  1. CORTANCYL [Concomitant]
     Active Substance: PREDNISONE
     Dosage: 7.5 MG, 1X/DAY
     Route: 048
     Dates: start: 2003, end: 201012
  2. METHOTREXATE. [Suspect]
     Active Substance: METHOTREXATE
     Indication: PRODUCT USED FOR UNKNOWN INDICATION
     Dosage: 10?MG,?WEEKLY
     Dates: start: 2010
  3. ENBREL [Suspect]
     Active Substance: ETANERCEPT
     Indication: PSORIATIC ARTHROPATHY
     Dosage: 50 MG, WEEKLY
     Route: 058
     Dates: start: 2003, end: 20110405

REACTIONS (3)
  - Skin ulcer [Recovering/Resolving]
  - Pain [Recovering/Resolving]
  - Segmented hyalinising vasculitis [Recovering/Resolving]

NARRATIVE: CASE EVENT DATE: 201012
